FAERS Safety Report 6297434-X (Version None)
Quarter: 2009Q3

REPORT INFORMATION
  Report Type: 
  Country: None (occurrence: None)
  Receive Date: 20090805
  Receipt Date: 20090423
  Transmission Date: 20100115
  Serious: No
  Sender: FDA-Public Use
  Company Number: US-BAYER-200919535NA

PATIENT
  Age: 23 Year
  Sex: Female

DRUGS (1)
  1. ULTRAVIST 370 [Suspect]
     Indication: HAEMATURIA
     Dosage: TOTAL DAILY DOSE: 100 ML  UNIT DOSE: 250 ML
     Route: 042
     Dates: start: 20090417, end: 20090417

REACTIONS (2)
  - FLUSHING [None]
  - NAUSEA [None]
